FAERS Safety Report 7767533-1 (Version None)
Quarter: 2011Q3

REPORT INFORMATION
  Report Type: 
  Country: None (occurrence: None)
  Receive Date: 20110922
  Receipt Date: 20110916
  Transmission Date: 20111222
  Serious: Yes (Hospitalization)
  Sender: FDA-Public Use
  Company Number: US-AMGEN AB-USASP2010000208

PATIENT
  Sex: Male

DRUGS (10)
  1. FIBER [Concomitant]
  2. ARICEPT                            /01318901/ [Concomitant]
  3. DIGOXIN [Concomitant]
  4. NPLATE [Suspect]
     Indication: IDIOPATHIC THROMBOCYTOPENIC PURPURA
     Dosage: 1 MUG/KG, UNK
     Route: 058
     Dates: start: 20081217, end: 20100902
  5. CALCIUM CARBONATE [Concomitant]
  6. OMEGA 3                            /00931501/ [Concomitant]
  7. MULTIVITAMIN                       /00097801/ [Concomitant]
  8. RITUXAN [Concomitant]
     Dosage: UNK
     Dates: start: 20080527, end: 20080617
  9. CORTICOSTEROIDS [Concomitant]
     Indication: IDIOPATHIC THROMBOCYTOPENIC PURPURA
     Dosage: UNK
     Dates: start: 20060629
  10. VINCRISTINE [Concomitant]
     Dosage: 2 MG, QWK
     Dates: start: 20071218, end: 20080221

REACTIONS (2)
  - DEMENTIA [None]
  - DEMENTIA ALZHEIMER'S TYPE [None]
